FAERS Safety Report 24450026 (Version 2)
Quarter: 2024Q4

REPORT INFORMATION
  Report Type: Spontaneous
  Country: IN (occurrence: IN)
  Receive Date: 20241017
  Receipt Date: 20241104
  Transmission Date: 20250115
  Serious: Yes (Other)
  Sender: JUBILANT
  Company Number: IN-JUBILANT CADISTA PHARMACEUTICALS-2024IN001488

PATIENT
  Age: 33 Year
  Sex: Female

DRUGS (2)
  1. LEVETIRACETAM [Suspect]
     Active Substance: LEVETIRACETAM
     Indication: Generalised tonic-clonic seizure
     Dosage: 1000 MG, 2 TIMES PER DAY, MAINTAINED ON 1000 MG BID
  2. LEVETIRACETAM [Suspect]
     Active Substance: LEVETIRACETAM
     Indication: Seizure cluster
     Dosage: 2 G, TOTAL, LOADING DOSE

REACTIONS (5)
  - Parkinsonism [Recovered/Resolved]
  - Reduced facial expression [Recovered/Resolved]
  - Restlessness [Recovered/Resolved]
  - Bradykinesia [Recovered/Resolved]
  - Dystonia [Recovered/Resolved]
